FAERS Safety Report 20031728 (Version 1)
Quarter: 2021Q4

REPORT INFORMATION
  Report Type: Spontaneous
  Country: CN (occurrence: CN)
  Receive Date: 20211103
  Receipt Date: 20211103
  Transmission Date: 20220303
  Serious: Yes (Hospitalization, Other)
  Sender: FDA-Public Use
  Company Number: CN-ABBVIE-21K-035-4144051-00

PATIENT
  Age: 24 Year
  Sex: Female
  Weight: 52 kg

DRUGS (4)
  1. VALPROATE SODIUM [Suspect]
     Active Substance: VALPROATE SODIUM
     Indication: Psychotic disorder
     Route: 048
     Dates: start: 20190902, end: 20190903
  2. OLANZAPINE [Suspect]
     Active Substance: OLANZAPINE
     Indication: Psychotic disorder
     Route: 048
     Dates: start: 20190902, end: 20190903
  3. HALOPERIDOL [Suspect]
     Active Substance: HALOPERIDOL
     Indication: Psychotic disorder
     Route: 030
     Dates: start: 20190902, end: 20190902
  4. HALOPERIDOL [Suspect]
     Active Substance: HALOPERIDOL
     Route: 030
     Dates: start: 20190903, end: 20190903

REACTIONS (1)
  - Orthostatic hypotension [Recovering/Resolving]

NARRATIVE: CASE EVENT DATE: 20190903
